FAERS Safety Report 13995176 (Version 1)
Quarter: 2017Q3

REPORT INFORMATION
  Report Type: Spontaneous
  Country: US (occurrence: US)
  Receive Date: 20170921
  Receipt Date: 20170921
  Transmission Date: 20171128
  Serious: No
  Sender: FDA-Public Use
  Company Number: US-AUROBINDO-AUR-APL-2017-32277

PATIENT
  Sex: Male

DRUGS (2)
  1. ALENDRONATE SODIUM TABLETS [Suspect]
     Active Substance: ALENDRONATE SODIUM
     Indication: BACK INJURY
     Dosage: UNK
     Route: 048
     Dates: start: 201106, end: 2015
  2. ATENOLOL. [Concomitant]
     Active Substance: ATENOLOL
     Indication: PRODUCT USED FOR UNKNOWN INDICATION
     Dosage: 25 MG, UNK
     Route: 065

REACTIONS (1)
  - Tooth injury [Unknown]
